FAERS Safety Report 25866337 (Version 1)
Quarter: 2025Q3

REPORT INFORMATION
  Report Type: Spontaneous
  Country: GB (occurrence: GB)
  Receive Date: 20250930
  Receipt Date: 20250930
  Transmission Date: 20251020
  Serious: Yes (Other)
  Sender: ABBVIE
  Company Number: None

PATIENT
  Age: 61 Year
  Sex: Female
  Weight: 80 kg

DRUGS (2)
  1. CITALOPRAM [Suspect]
     Active Substance: CITALOPRAM
     Indication: Menopausal depression
     Dosage: 10MG ONCE A DAY IN THE MORNING
     Route: 048
  2. TAMOXIFEN [Concomitant]
     Active Substance: TAMOXIFEN
     Indication: Breast cancer stage II

REACTIONS (5)
  - Cough [Not Recovered/Not Resolved]
  - Heart rate irregular [Recovering/Resolving]
  - Palpitations [Recovering/Resolving]
  - Palpitations [Recovering/Resolving]
  - Chest discomfort [Not Recovered/Not Resolved]
